FAERS Safety Report 23189333 (Version 1)
Quarter: 2023Q4

REPORT INFORMATION
  Report Type: Report from Study
  Country: AU (occurrence: AU)
  Receive Date: 20231116
  Receipt Date: 20231116
  Transmission Date: 20240110
  Serious: Yes (Hospitalization)
  Sender: FDA-Public Use
  Company Number: AU-EUCURE (BEIJING) BIOPHARMA CO., LTD-2023AU00023

PATIENT

DRUGS (71)
  1. TORIPALIMAB [Suspect]
     Active Substance: TORIPALIMAB
     Indication: Ductal adenocarcinoma of pancreas
     Dosage: 240 MG, Q3W
     Route: 042
     Dates: start: 20220721, end: 20220721
  2. TORIPALIMAB [Suspect]
     Active Substance: TORIPALIMAB
     Dosage: 240 MG, Q3W
     Route: 042
     Dates: start: 20220811, end: 20220811
  3. TORIPALIMAB [Suspect]
     Active Substance: TORIPALIMAB
     Dosage: 240 MG, Q3W
     Route: 042
     Dates: start: 20220901, end: 20220901
  4. TORIPALIMAB [Suspect]
     Active Substance: TORIPALIMAB
     Dosage: 240 MG, Q3W
     Route: 042
     Dates: start: 20220920, end: 20220920
  5. TORIPALIMAB [Suspect]
     Active Substance: TORIPALIMAB
     Dosage: 240 MG, Q3W
     Route: 042
     Dates: start: 20221013, end: 20221013
  6. TORIPALIMAB [Suspect]
     Active Substance: TORIPALIMAB
     Dosage: 240 MG, Q3W
     Route: 042
     Dates: start: 20221201, end: 20221201
  7. TORIPALIMAB [Suspect]
     Active Substance: TORIPALIMAB
     Dosage: 240 MG, Q3W,C10D1
     Route: 042
     Dates: start: 20230105, end: 20230105
  8. TORIPALIMAB [Suspect]
     Active Substance: TORIPALIMAB
     Dosage: 240 MG, Q3W
     Route: 042
     Dates: start: 20230202, end: 20230202
  9. TORIPALIMAB [Suspect]
     Active Substance: TORIPALIMAB
     Dosage: 240 MG, Q3W
     Route: 042
     Dates: start: 20230222, end: 20230222
  10. TORIPALIMAB [Suspect]
     Active Substance: TORIPALIMAB
     Dosage: 240 MG, Q3W
     Route: 042
     Dates: start: 20230317, end: 20230317
  11. TORIPALIMAB [Suspect]
     Active Substance: TORIPALIMAB
     Dosage: 240 MG, Q3W,DAY 1 AND DAY 8 OF EACH 21 DAYS
     Route: 042
     Dates: start: 20230413, end: 20230413
  12. TORIPALIMAB [Suspect]
     Active Substance: TORIPALIMAB
     Dosage: 240 MG, Q3W,DAY 1 AND DAY 8 OF EACH 21 DAYS
     Route: 042
     Dates: start: 20230405, end: 20230405
  13. TORIPALIMAB [Suspect]
     Active Substance: TORIPALIMAB
     Dosage: 240 MG,Q3WEEKS
     Route: 042
     Dates: start: 20230525, end: 20230525
  14. TORIPALIMAB [Suspect]
     Active Substance: TORIPALIMAB
     Dosage: 240 MG,Q3WEEKS
     Route: 042
     Dates: end: 20230526
  15. INVESTIGATIONAL PRODUCT [Suspect]
     Active Substance: INVESTIGATIONAL PRODUCT
     Indication: Ductal adenocarcinoma of pancreas
     Dosage: 21 MG, Q3W, C1D1
     Route: 042
     Dates: start: 20220721, end: 20220721
  16. INVESTIGATIONAL PRODUCT [Suspect]
     Active Substance: INVESTIGATIONAL PRODUCT
     Dosage: 21 MG, Q3W
     Route: 042
     Dates: start: 20220811, end: 20220811
  17. INVESTIGATIONAL PRODUCT [Suspect]
     Active Substance: INVESTIGATIONAL PRODUCT
     Dosage: 21 MG, Q3W
     Route: 042
     Dates: start: 20220901, end: 20220901
  18. INVESTIGATIONAL PRODUCT [Suspect]
     Active Substance: INVESTIGATIONAL PRODUCT
     Dosage: 21 MG, Q3W,C3D1
     Route: 042
     Dates: start: 20220920, end: 20220920
  19. INVESTIGATIONAL PRODUCT [Suspect]
     Active Substance: INVESTIGATIONAL PRODUCT
     Dosage: 21 MG, Q3W
     Route: 042
     Dates: start: 20221013, end: 20221013
  20. INVESTIGATIONAL PRODUCT [Suspect]
     Active Substance: INVESTIGATIONAL PRODUCT
     Dosage: 21 MG, Q3W
     Route: 042
     Dates: start: 20221201, end: 20221201
  21. INVESTIGATIONAL PRODUCT [Suspect]
     Active Substance: INVESTIGATIONAL PRODUCT
     Dosage: 21 MG, Q3W,C5D1
     Route: 042
     Dates: start: 20230105, end: 20230105
  22. INVESTIGATIONAL PRODUCT [Suspect]
     Active Substance: INVESTIGATIONAL PRODUCT
     Dosage: 19 MG, Q3W,C7D1
     Route: 042
     Dates: start: 20230202, end: 20230202
  23. INVESTIGATIONAL PRODUCT [Suspect]
     Active Substance: INVESTIGATIONAL PRODUCT
     Dosage: 19 MG, Q3W
     Route: 042
     Dates: start: 20230222, end: 20230222
  24. INVESTIGATIONAL PRODUCT [Suspect]
     Active Substance: INVESTIGATIONAL PRODUCT
     Dosage: 19 MG, Q3W,C10D1
     Route: 042
     Dates: start: 20230317, end: 20230317
  25. INVESTIGATIONAL PRODUCT [Suspect]
     Active Substance: INVESTIGATIONAL PRODUCT
     Dosage: 19 MG, Q3W,C11,D1
     Route: 042
     Dates: start: 20230413, end: 20230413
  26. INVESTIGATIONAL PRODUCT [Suspect]
     Active Substance: INVESTIGATIONAL PRODUCT
     Dosage: 19 MG, Q3W
     Route: 042
     Dates: start: 20230505, end: 20230505
  27. INVESTIGATIONAL PRODUCT [Suspect]
     Active Substance: INVESTIGATIONAL PRODUCT
     Dosage: 19 MG, Q3W
     Route: 042
     Dates: start: 20230525, end: 20230525
  28. INVESTIGATIONAL PRODUCT [Suspect]
     Active Substance: INVESTIGATIONAL PRODUCT
     Dosage: 19 MG, Q3W
     Route: 042
     Dates: end: 20230526
  29. PACLITAXEL [Suspect]
     Active Substance: PACLITAXEL
     Indication: Ductal adenocarcinoma of pancreas
     Dosage: 221 MG
     Route: 042
     Dates: start: 20220721, end: 20220721
  30. PACLITAXEL [Suspect]
     Active Substance: PACLITAXEL
     Dosage: 221 MG,C1D8
     Route: 042
     Dates: start: 20220728, end: 20220728
  31. PACLITAXEL [Suspect]
     Active Substance: PACLITAXEL
     Dosage: 223 MG
     Route: 042
     Dates: start: 20220811, end: 20220811
  32. PACLITAXEL [Suspect]
     Active Substance: PACLITAXEL
     Dosage: 223 MG
     Route: 042
     Dates: start: 20220816, end: 20220816
  33. PACLITAXEL [Suspect]
     Active Substance: PACLITAXEL
     Dosage: 214 MG,DAY 1 AND DAY 8 OF EACH 21 DAYS
     Route: 042
     Dates: start: 20220901, end: 20220901
  34. PACLITAXEL [Suspect]
     Active Substance: PACLITAXEL
     Dosage: 214 MG,DAY 1 AND DAY 8 OF EACH 21 DAYS
     Route: 042
     Dates: start: 20220908, end: 20220908
  35. PACLITAXEL [Suspect]
     Active Substance: PACLITAXEL
     Dosage: 219 MG,DAY 1 AND DAY 8 OF EACH 21 DAYS
     Route: 042
     Dates: start: 20220920, end: 20220920
  36. PACLITAXEL [Suspect]
     Active Substance: PACLITAXEL
     Dosage: 219 MG,DAY 1 AND DAY 8 OF EACH 21 DAYS
     Route: 042
     Dates: start: 20220929, end: 20220929
  37. PACLITAXEL [Suspect]
     Active Substance: PACLITAXEL
     Dosage: 218 MG,DAY 1 AND DAY 8 OF EACH 21 DAYS
     Route: 042
     Dates: start: 20221013, end: 20221013
  38. PACLITAXEL [Suspect]
     Active Substance: PACLITAXEL
     Dosage: 219 MG,1 AND DAY 8 OF EACH 21 DAYS
     Route: 042
     Dates: start: 20221018, end: 20221018
  39. GEMCITABINE [Suspect]
     Active Substance: GEMCITABINE
     Indication: Ductal adenocarcinoma of pancreas
     Dosage: 1770 MG
     Route: 042
     Dates: start: 20220721, end: 20220721
  40. GEMCITABINE [Suspect]
     Active Substance: GEMCITABINE
     Dosage: 1770 MG
     Route: 042
     Dates: start: 20220728, end: 20220728
  41. GEMCITABINE [Suspect]
     Active Substance: GEMCITABINE
     Dosage: 1780 MG
     Route: 042
     Dates: start: 20220811, end: 20220811
  42. GEMCITABINE [Suspect]
     Active Substance: GEMCITABINE
     Dosage: 1780 MG, DAY 1 AND DAY 8 OF EACH 21 DAYS
     Route: 042
     Dates: start: 20220816, end: 20220816
  43. GEMCITABINE [Suspect]
     Active Substance: GEMCITABINE
     Dosage: 1710 MG,DAY 1 AND DAY 8 OF EACH 21 DAYS
     Route: 042
     Dates: start: 20220901, end: 20220901
  44. GEMCITABINE [Suspect]
     Active Substance: GEMCITABINE
     Dosage: 1710 MG,DAY 1 AND DAY 8 OF EACH 21 DAYS
     Route: 042
     Dates: start: 20220908, end: 20220908
  45. GEMCITABINE [Suspect]
     Active Substance: GEMCITABINE
     Dosage: 1750 MG,DAY 1 AND DAY 8 OF EACH 21 DAYS
     Route: 042
     Dates: start: 20220920, end: 20220920
  46. GEMCITABINE [Suspect]
     Active Substance: GEMCITABINE
     Dosage: 1750 MG,DAY 1 AND DAY 8 OF EACH 21 DAYS
     Route: 042
     Dates: start: 20220929, end: 20220929
  47. GEMCITABINE [Suspect]
     Active Substance: GEMCITABINE
     Dosage: 1740 MG, DAY 1 AND DAY 8 OF EACH 21 DAYS
     Route: 042
     Dates: start: 20221013, end: 20221013
  48. GEMCITABINE [Suspect]
     Active Substance: GEMCITABINE
     Dosage: 1750 MG,DAY 1 AND DAY 8 OF EACH 21 DAYS
     Route: 042
     Dates: start: 20221018, end: 20221018
  49. GEMCITABINE [Suspect]
     Active Substance: GEMCITABINE
     Dosage: 1750 MG,DAY 1 AND DAY 8 OF EACH 21 DAYS
     Route: 042
     Dates: start: 20221110, end: 20221110
  50. GEMCITABINE [Suspect]
     Active Substance: GEMCITABINE
     Dosage: 1740 MG,DAY 1 AND DAY 8 OF EACH 21 DAYS
     Route: 042
     Dates: start: 20221201, end: 20221201
  51. GEMCITABINE [Suspect]
     Active Substance: GEMCITABINE
     Dosage: 1740 MG,DAY 1 AND DAY 8 OF EACH 21 DAYS
     Route: 042
     Dates: start: 20221208, end: 20221208
  52. GEMCITABINE [Suspect]
     Active Substance: GEMCITABINE
     Dosage: 1680 MG,DAY 1 AND DAY 8 OF EACH 21 DAYS
     Route: 042
     Dates: start: 20230105, end: 20230105
  53. GEMCITABINE [Suspect]
     Active Substance: GEMCITABINE
     Dosage: 1710 MG, DAY 1 AND DAY 8 OF EACH 21 DAYS
     Route: 042
     Dates: start: 20230202, end: 20230202
  54. GEMCITABINE [Suspect]
     Active Substance: GEMCITABINE
     Dosage: 1710 MG,DAY 1 AND DAY 8 OF EACH 21 DAYS
     Route: 042
     Dates: start: 20230222, end: 20230222
  55. GEMCITABINE [Suspect]
     Active Substance: GEMCITABINE
     Dosage: 1710 MG,DAY 1 AND DAY 8 OF EACH 21 DAYS
     Route: 042
     Dates: start: 20230302, end: 20230302
  56. GEMCITABINE [Suspect]
     Active Substance: GEMCITABINE
     Dosage: 1710 MG,DAY 1 AND DAY 8 OF EACH 21 DAYS
     Route: 042
     Dates: start: 20230317, end: 20230317
  57. GEMCITABINE [Suspect]
     Active Substance: GEMCITABINE
     Dosage: 1710 MG,DAY 1 AND DAY 8 OF EACH 21 DAYS
     Route: 042
     Dates: start: 20230323, end: 20230323
  58. GEMCITABINE [Suspect]
     Active Substance: GEMCITABINE
     Dosage: 1700 MG, DAY 1 AND DAY 8 EACH 21 DAYS
     Route: 042
     Dates: start: 20230413, end: 20230413
  59. GEMCITABINE [Suspect]
     Active Substance: GEMCITABINE
     Dosage: 1700 MG,DAY 1 AND DAY 8 OF EACH 21 DAYS
     Route: 042
     Dates: start: 20230421, end: 20230421
  60. GEMCITABINE [Suspect]
     Active Substance: GEMCITABINE
     Dosage: 1750 MG,DAY 1 AND DAY 8 OF EACH 21 DAYS
     Route: 042
     Dates: start: 20230505, end: 20230505
  61. GEMCITABINE [Suspect]
     Active Substance: GEMCITABINE
     Dosage: 1750 MG,DAY 1 AND DAY 8 OF EACH 21 DAYS
     Route: 042
     Dates: start: 20230511, end: 20230511
  62. GEMCITABINE [Suspect]
     Active Substance: GEMCITABINE
     Dosage: 1750 MG,DAY 1 AND DAY 8 OF EACH 21 DAYS
     Route: 042
     Dates: start: 20230525, end: 20230525
  63. GEMCITABINE [Suspect]
     Active Substance: GEMCITABINE
     Dosage: 1750 MG,DAY 1 AND DAY 8 OF EACH 21 DAYS
     Route: 042
     Dates: end: 20230526
  64. FELODIPINE [Concomitant]
     Active Substance: FELODIPINE
     Indication: Hypertension
     Dosage: 5 MG, QD
     Route: 048
     Dates: start: 2017
  65. LERCANIDIPINE [Concomitant]
     Active Substance: LERCANIDIPINE
     Indication: Hypertension
     Dosage: 20 MG
     Route: 048
     Dates: start: 20230113
  66. PRAZOSIN [Concomitant]
     Active Substance: PRAZOSIN
     Indication: Hypertension
     Dosage: 1 MG, TID
     Route: 048
     Dates: start: 20230116, end: 20230526
  67. METOPROLOL [Concomitant]
     Active Substance: METOPROLOL
     Indication: Hypertension
     Dosage: 50 MG, BID
     Route: 048
     Dates: start: 20230202
  68. GINGER [Concomitant]
     Active Substance: GINGER
     Indication: Prophylaxis of nausea and vomiting
     Dosage: 1 {DF}, PRN
     Route: 048
     Dates: start: 20230222
  69. HERBALS\SPIRULINA [Concomitant]
     Active Substance: HERBALS\SPIRULINA
     Indication: Phytotherapy
     Dosage: 3.7 G, QD
     Route: 048
     Dates: start: 20230222
  70. CIPROFLOXACIN [Concomitant]
     Active Substance: CIPROFLOXACIN
     Indication: Urinary tract infection
     Dosage: 250 MG, BID
     Route: 048
     Dates: start: 20230509, end: 20230519
  71. HUMAN RED BLOOD CELL [Concomitant]
     Active Substance: HUMAN RED BLOOD CELL
     Dosage: 1 IU, SINGLE
     Route: 048
     Dates: start: 20230509, end: 20230519

REACTIONS (2)
  - Malignant hypertension [Recovered/Resolved]
  - Sepsis [Recovered/Resolved]

NARRATIVE: CASE EVENT DATE: 20230524
